FAERS Safety Report 14861313 (Version 2)
Quarter: 2020Q1

REPORT INFORMATION
  Report Type: Spontaneous
  Country: US (occurrence: US)
  Receive Date: 20180508
  Receipt Date: 20200331
  Transmission Date: 20200409
  Serious: Yes (Death, Other)
  Sender: FDA-Public Use
  Company Number: US-ASTRAZENECA-2018SE58342

PATIENT
  Sex: Male
  Weight: 117 kg

DRUGS (32)
  1. BYETTA [Suspect]
     Active Substance: EXENATIDE
     Dosage: 10 MCG/0.04 ML
     Route: 058
     Dates: start: 20150219
  2. ACTOS [Concomitant]
     Active Substance: PIOGLITAZONE HYDROCHLORIDE
     Dates: start: 2001, end: 200606
  3. AMITIZA [Concomitant]
     Active Substance: LUBIPROSTONE
  4. DILAUDID [Concomitant]
     Active Substance: HYDROMORPHONE HYDROCHLORIDE
  5. FENOFIBRATE. [Concomitant]
     Active Substance: FENOFIBRATE
  6. GABAPENTIN. [Concomitant]
     Active Substance: GABAPENTIN
  7. BYETTA [Suspect]
     Active Substance: EXENATIDE
     Route: 065
     Dates: start: 20141231, end: 201607
  8. BYETTA [Suspect]
     Active Substance: EXENATIDE
     Route: 065
     Dates: start: 20060605, end: 201303
  9. CLARINEX [Concomitant]
     Active Substance: DESLORATADINE
  10. OMEPRAZOLE. [Concomitant]
     Active Substance: OMEPRAZOLE
  11. PROZAC [Concomitant]
     Active Substance: FLUOXETINE HYDROCHLORIDE
  12. MIRALAX [Concomitant]
     Active Substance: POLYETHYLENE GLYCOL 3350
  13. ULTRACET [Concomitant]
     Active Substance: ACETAMINOPHEN\TRAMADOL HYDROCHLORIDE
  14. TYLENOL [Concomitant]
     Active Substance: ACETAMINOPHEN
  15. BYETTA [Suspect]
     Active Substance: EXENATIDE
     Dosage: 10 MCG/0.04 ML
     Route: 058
     Dates: start: 200606, end: 201112
  16. PIROXICAM. [Concomitant]
     Active Substance: PIROXICAM
  17. VICTOZA [Suspect]
     Active Substance: LIRAGLUTIDE
     Route: 065
     Dates: start: 20130319, end: 201501
  18. CRESTOR [Concomitant]
     Active Substance: ROSUVASTATIN CALCIUM
  19. POLYETHYLENE [Concomitant]
     Active Substance: HIGH DENSITY POLYETHYLENE
  20. WELLBUTRIN [Concomitant]
     Active Substance: BUPROPION HYDROCHLORIDE
  21. FLONASE [Concomitant]
     Active Substance: FLUTICASONE PROPIONATE
  22. LORAZEPAM. [Concomitant]
     Active Substance: LORAZEPAM
  23. PRAVASTATIN. [Concomitant]
     Active Substance: PRAVASTATIN
  24. NASACORT [Concomitant]
     Active Substance: TRIAMCINOLONE ACETONIDE
  25. LISINOPRIL. [Concomitant]
     Active Substance: LISINOPRIL
  26. METOPROLOL. [Concomitant]
     Active Substance: METOPROLOL
  27. DEMADEX [Concomitant]
     Active Substance: TORSEMIDE
  28. RANEXA [Concomitant]
     Active Substance: RANOLAZINE
  29. BYETTA [Suspect]
     Active Substance: EXENATIDE
     Route: 058
     Dates: start: 20110607
  30. ASPIRIN. [Concomitant]
     Active Substance: ASPIRIN
  31. LANTUS [Concomitant]
     Active Substance: INSULIN GLARGINE
  32. METAMUCIL [Concomitant]
     Active Substance: PLANTAGO SEED

REACTIONS (3)
  - Emotional distress [Unknown]
  - Pancreatic carcinoma [Fatal]
  - Thyroid cancer [Unknown]
